FAERS Safety Report 9209706 (Version 1)
Quarter: 2013Q2

REPORT INFORMATION
  Report Type: Spontaneous
  Country: US (occurrence: US)
  Receive Date: 20130404
  Receipt Date: 20130404
  Transmission Date: 20140414
  Serious: No
  Sender: FDA-Public Use
  Company Number: US-BAYER-2013-041824

PATIENT
  Age: 91 Year
  Sex: Female
  Weight: 72.56 kg

DRUGS (3)
  1. ALEVE TABLET [Suspect]
     Indication: HERPES ZOSTER
     Dosage: 2 DF, PRN
     Route: 048
     Dates: start: 20130113
  2. ASPIRIN BAYER [Concomitant]
     Indication: ISCHAEMIC HEART DISEASE PROPHYLAXIS
  3. EQUATE [Concomitant]

REACTIONS (1)
  - Pre-existing condition improved [None]
